FAERS Safety Report 7768566-1 (Version None)
Quarter: 2011Q3

REPORT INFORMATION
  Report Type: 
  Country: None (occurrence: None)
  Receive Date: 20110922
  Receipt Date: 20101027
  Transmission Date: 20111222
  Serious: No
  Sender: FDA-Public Use
  Company Number: US-ASTRAZENECA-2010SE51065

PATIENT
  Age: 20 Year
  Sex: Female

DRUGS (4)
  1. SEROQUEL [Suspect]
     Dosage: ONE HALF TABLET HS
     Route: 048
  2. SEROQUEL [Suspect]
     Indication: ANXIETY
     Dosage: ONE FOURTH TABLET HS
     Route: 048
     Dates: start: 20100701
  3. SEROQUEL [Suspect]
     Indication: SLEEP DISORDER
     Dosage: ONE FOURTH TABLET HS
     Route: 048
     Dates: start: 20100701
  4. SEROQUEL [Suspect]
     Dosage: ONE HALF TABLET HS
     Route: 048

REACTIONS (5)
  - PANIC ATTACK [None]
  - WRONG TECHNIQUE IN DRUG USAGE PROCESS [None]
  - PALPITATIONS [None]
  - WRONG DRUG ADMINISTERED [None]
  - INSOMNIA [None]
